FAERS Safety Report 25335490 (Version 1)
Quarter: 2025Q2

REPORT INFORMATION
  Report Type: Spontaneous
  Country: US (occurrence: US)
  Receive Date: 20250520
  Receipt Date: 20250520
  Transmission Date: 20250717
  Serious: Yes (Other)
  Sender: AUROBINDO
  Company Number: US-AUROBINDO-AUR-APL-2025-025229

PATIENT
  Age: 57 Year
  Sex: Female

DRUGS (10)
  1. AMBRISENTAN [Suspect]
     Active Substance: AMBRISENTAN
     Indication: Pulmonary hypertension
     Route: 065
  2. AMBRISENTAN [Suspect]
     Active Substance: AMBRISENTAN
     Route: 065
  3. FUROSEMIDE [Suspect]
     Active Substance: FUROSEMIDE
     Indication: Acute kidney injury
     Route: 042
  4. FUROSEMIDE [Suspect]
     Active Substance: FUROSEMIDE
     Indication: Pulmonary hypertension
  5. RIOCIGUAT [Suspect]
     Active Substance: RIOCIGUAT
     Indication: Pulmonary hypertension
     Route: 065
  6. BUMETANIDE [Suspect]
     Active Substance: BUMETANIDE
     Indication: Pulmonary hypertension
     Route: 042
  7. EPOPROSTENOL [Suspect]
     Active Substance: EPOPROSTENOL
     Indication: Acute kidney injury
     Route: 042
  8. EPOPROSTENOL [Suspect]
     Active Substance: EPOPROSTENOL
     Indication: Pulmonary hypertension
  9. EPOPROSTENOL [Concomitant]
     Active Substance: EPOPROSTENOL
     Indication: Acute kidney injury
     Route: 042
  10. EPOPROSTENOL [Concomitant]
     Active Substance: EPOPROSTENOL
     Indication: Pulmonary hypertension

REACTIONS (1)
  - Drug ineffective [Unknown]
